FAERS Safety Report 12390627 (Version 1)
Quarter: 2016Q2

REPORT INFORMATION
  Report Type: Spontaneous
  Country: US (occurrence: US)
  Receive Date: 20160520
  Receipt Date: 20160520
  Transmission Date: 20160815
  Serious: Yes (Death, Hospitalization, Other)
  Sender: FDA-Public Use
  Company Number: US-DSJP-DSU-2016-116863

PATIENT

DRUGS (1)
  1. WELCHOL [Suspect]
     Active Substance: COLESEVELAM HYDROCHLORIDE
     Indication: PRODUCT USED FOR UNKNOWN INDICATION
     Dosage: 3.75 G, QD (ONE PACKET DAILY WITH MEALS)
     Route: 048

REACTIONS (7)
  - Cardiac failure congestive [Unknown]
  - Diabetes mellitus [Unknown]
  - Death [Fatal]
  - Pneumonia [Unknown]
  - Renal failure [Unknown]
  - Influenza [Unknown]
  - Hypertension [Unknown]

NARRATIVE: CASE EVENT DATE: 20160430
